FAERS Safety Report 12525723 (Version 1)
Quarter: 2016Q3

REPORT INFORMATION
  Report Type: Spontaneous
  Country: US (occurrence: US)
  Receive Date: 20160705
  Receipt Date: 20160705
  Transmission Date: 20161109
  Serious: Yes (Other)
  Sender: FDA-Public Use
  Company Number: US-ZYDUS-011483

PATIENT
  Age: 39 Year
  Sex: Female

DRUGS (5)
  1. VENLAFAXINE/VENLAFAXINE HYDROCHLORIDE [Interacting]
     Active Substance: VENLAFAXINE HYDROCHLORIDE
     Indication: PRODUCT USED FOR UNKNOWN INDICATION
     Route: 065
  2. ETHANOL [Suspect]
     Active Substance: ALCOHOL
     Indication: PRODUCT USED FOR UNKNOWN INDICATION
     Route: 065
  3. ALPRAZOLAM. [Suspect]
     Active Substance: ALPRAZOLAM
     Indication: PHOBIA OF FLYING
     Route: 065
  4. ZOLPIDEM [Interacting]
     Active Substance: ZOLPIDEM\ZOLPIDEM TARTRATE
     Indication: INSOMNIA
     Route: 065
  5. SERTRALINE [Suspect]
     Active Substance: SERTRALINE HYDROCHLORIDE
     Indication: PRODUCT USED FOR UNKNOWN INDICATION
     Route: 065

REACTIONS (15)
  - Euphoric mood [Unknown]
  - Homicide [Unknown]
  - Suicide attempt [Recovered/Resolved]
  - Death of relative [None]
  - Neurotoxicity [None]
  - Akathisia [Unknown]
  - Delirium [Unknown]
  - Feeling abnormal [None]
  - Intentional overdose [None]
  - Agitation [Unknown]
  - Divorced [None]
  - Mental impairment [Unknown]
  - Drug interaction [Unknown]
  - Inappropriate schedule of drug administration [None]
  - Emotional disorder [Unknown]
